FAERS Safety Report 11020187 (Version 1)
Quarter: 2015Q2

REPORT INFORMATION
  Report Type: Spontaneous
  Country: CA (occurrence: CA)
  Receive Date: 20150413
  Receipt Date: 20150413
  Transmission Date: 20150821
  Serious: Yes (Other)
  Sender: FDA-Public Use
  Company Number: CA-SYMPLMED PHARMACEUTICALS-2015SYM00052

PATIENT
  Sex: Male
  Weight: 70 kg

DRUGS (2)
  1. ACEON [Suspect]
     Active Substance: PERINDOPRIL ERBUMINE
     Indication: HYPERTENSION
     Dosage: 8 MG, QD
     Route: 048
  2. ACEON [Suspect]
     Active Substance: PERINDOPRIL ERBUMINE
     Indication: HYPERTENSION
     Dosage: 4 MG, QD
     Route: 048

REACTIONS (6)
  - Proctalgia [Recovered/Resolved]
  - Faecal volume decreased [Recovered/Resolved]
  - Rectal haemorrhage [Recovered/Resolved]
  - Rectal tenesmus [Recovered/Resolved]
  - Faeces hard [Recovered/Resolved]
  - Change of bowel habit [Recovered/Resolved]

NARRATIVE: CASE EVENT DATE: 2015
